FAERS Safety Report 5470152-3 (Version None)
Quarter: 2007Q3

REPORT INFORMATION
  Report Type: 
  Country: None (occurrence: None)
  Receive Date: 20070924
  Receipt Date: 20070911
  Transmission Date: 20080115
  Serious: Yes (Other)
  Sender: FDA-Public Use
  Company Number: 2007RL000395

PATIENT
  Age: 61 Year
  Sex: Male
  Weight: 91.6266 kg

DRUGS (5)
  1. LOVAZA [Suspect]
     Indication: HYPERTRIGLYCERIDAEMIA
     Dosage: 4 GM; QD; PO
     Route: 048
     Dates: start: 20070623
  2. WARFARIN SODIUM [Concomitant]
  3. ALLOPURINOL [Concomitant]
  4. MTV [Concomitant]
  5. ZINC [Concomitant]

REACTIONS (5)
  - BLOOD ALKALINE PHOSPHATASE INCREASED [None]
  - BLOOD CHOLESTEROL INCREASED [None]
  - BLOOD GLUCOSE INCREASED [None]
  - BLOOD TRIGLYCERIDES INCREASED [None]
  - HIGH DENSITY LIPOPROTEIN DECREASED [None]
